FAERS Safety Report 19131620 (Version 1)
Quarter: 2021Q2

REPORT INFORMATION
  Report Type: Report from Study
  Country: BR (occurrence: BR)
  Receive Date: 20210413
  Receipt Date: 20210413
  Transmission Date: 20210717
  Serious: Yes (Disabling)
  Sender: FDA-Public Use
  Company Number: BR-TAKEDA-2021TUS022633

PATIENT
  Sex: Male

DRUGS (1)
  1. HEMO?8R [Suspect]
     Active Substance: ANTIHEMOPHILIC FACTOR, HUMAN RECOMBINANT
     Indication: HAEMOPHILIA
     Dosage: UNK
     Route: 042

REACTIONS (3)
  - Wheelchair user [Recovered/Resolved]
  - Arthropathy [Recovered/Resolved]
  - Condition aggravated [Recovered/Resolved]
